FAERS Safety Report 7903453-7 (Version None)
Quarter: 2011Q4

REPORT INFORMATION
  Report Type: 
  Country: None (occurrence: None)
  Receive Date: 20111107
  Receipt Date: 20111024
  Transmission Date: 20120403
  Serious: Yes (Congenital Anomaly, Other)
  Sender: FDA-Public Use
  Company Number: FK201102464

PATIENT
  Sex: Female

DRUGS (3)
  1. DEMEROL (PETHIDINE HYDROCHLORIDE) (PETHIDINE HYDROCHLORIDE) [Concomitant]
  2. PHENERGAN (PROMETHAZINE) (PROMETHAZINE) [Concomitant]
  3. OXYTOCIN [Suspect]
     Indication: LABOUR INDUCTION
     Dosage: 6 MU/MIN, 12 MU/MIN,  18 MU/MIN,  24 MU/MIN,  30 MU/MIN,  32 MU/MIN,  40 MU/MIN,  42 MU/MIN,  42 MU/

REACTIONS (3)
  - FOETAL EXPOSURE DURING PREGNANCY [None]
  - CAESAREAN SECTION [None]
  - EXTRASYSTOLES [None]
